FAERS Safety Report 24585987 (Version 2)
Quarter: 2024Q4

REPORT INFORMATION
  Report Type: Spontaneous
  Country: US (occurrence: US)
  Receive Date: 20241106
  Receipt Date: 20241125
  Transmission Date: 20250115
  Serious: No
  Sender: BRISTOL-MYERS SQUIBB COMPANY
  Company Number: US-BRISTOL-MYERS SQUIBB COMPANY-2024-173536

PATIENT
  Age: 62 Year
  Sex: Male

DRUGS (11)
  1. REVLIMID [Suspect]
     Active Substance: LENALIDOMIDE
     Indication: Plasma cell myeloma
     Route: 048
  2. VITAMIN B12 [Concomitant]
     Active Substance: CYANOCOBALAMIN
     Indication: Product used for unknown indication
  3. GINGER ROOT [ZINGIBER OFFICINALE RHIZOME] [Concomitant]
     Indication: Product used for unknown indication
  4. FOLATE SODIUM [Concomitant]
     Active Substance: FOLATE SODIUM
     Indication: Product used for unknown indication
  5. BETA CAROTENE [Concomitant]
     Active Substance: BETA CAROTENE
     Indication: Product used for unknown indication
  6. MAGNESIUM ASPARTATE\POTASSIUM ASPARTATE [Concomitant]
     Active Substance: MAGNESIUM ASPARTATE\POTASSIUM ASPARTATE
     Indication: Product used for unknown indication
     Dosage: RA.
  7. GLUCOSAMINE CHONDROITIN [CHONDROITIN SULFATE;GLUCOSAMINE] [Concomitant]
     Indication: Product used for unknown indication
     Dosage: T.
  8. VITAMIN D3 [Concomitant]
     Active Substance: CHOLECALCIFEROL
     Indication: Product used for unknown indication
  9. MINERALS\VITAMINS [Concomitant]
     Active Substance: MINERALS\VITAMINS
     Indication: Product used for unknown indication
  10. QUERCETIN [Concomitant]
     Active Substance: QUERCETIN
     Indication: Product used for unknown indication
  11. ASPIRIN [Concomitant]
     Active Substance: ASPIRIN
     Indication: Product used for unknown indication

REACTIONS (5)
  - Pruritus [Unknown]
  - Erythema [Unknown]
  - Rash macular [Unknown]
  - Feeling hot [Unknown]
  - Off label use [Unknown]
